FAERS Safety Report 15977362 (Version 1)
Quarter: 2019Q1

REPORT INFORMATION
  Report Type: Spontaneous
  Country: FR (occurrence: FR)
  Receive Date: 20190218
  Receipt Date: 20190218
  Transmission Date: 20190418
  Serious: Yes (Other)
  Sender: FDA-Public Use
  Company Number: FR-MYLANLABS-2019M1014059

PATIENT
  Age: 56 Year
  Sex: Male
  Weight: 85 kg

DRUGS (18)
  1. VALIUM [Concomitant]
     Active Substance: DIAZEPAM
  2. METHADONE AP HP [Concomitant]
     Active Substance: METHADONE HYDROCHLORIDE
     Dosage: UNK, (CONCENTRATION-1,33 MG/ML)
  3. SULFARLEM S [Concomitant]
     Active Substance: ANETHOLTRITHION
  4. PAROXETINE MESILATE [Concomitant]
     Active Substance: PAROXETINE MESYLATE
  5. HALDOL [Concomitant]
     Active Substance: HALOPERIDOL
  6. PENICILLINE G PANPHARMA [Suspect]
     Active Substance: PENICILLIN G SODIUM
     Indication: ERYSIPELAS
     Dosage: 12 MUI EN IVSE (ADMINISTRATION CONTINUE)
     Route: 041
     Dates: start: 20180611, end: 20180613
  7. DEPAKOTE [Concomitant]
     Active Substance: DIVALPROEX SODIUM
  8. METFORMINE                         /00082701/ [Concomitant]
     Active Substance: METFORMIN HYDROCHLORIDE
  9. ZAMUDOL LP 100 MG, G?LULE ? LIB?RATION PROLONG?E [Suspect]
     Active Substance: TRAMADOL HYDROCHLORIDE
     Indication: PAIN IN EXTREMITY
     Dosage: 200 MILLIGRAM, QD(1 G?LULE DE 100MG LE MATIN ET LE SOIR)
     Route: 048
     Dates: start: 20180612, end: 20180613
  10. MACROGOL STEARATE [Concomitant]
     Active Substance: POLYETHYLENE GLYCOLS
  11. LEPTICUR [Concomitant]
     Active Substance: TROPATEPINE HYDROCHLORIDE
  12. DAFALGAN [Concomitant]
     Active Substance: ACETAMINOPHEN
  13. PREVISCAN                          /00789001/ [Concomitant]
     Active Substance: FLUINDIONE
  14. LOXAPAC                            /00401802/ [Concomitant]
     Active Substance: LOXAPINE SUCCINATE
  15. CONTRAMAL [Suspect]
     Active Substance: TRAMADOL HYDROCHLORIDE
     Indication: PAIN IN EXTREMITY
     Dosage: 200 MILLIGRAM, PRN,CONTRAMAL 50 MG G?LULE X 4 PAR JOUR SI BESOIN
     Route: 048
     Dates: start: 20180611, end: 20180613
  16. AMOXICILINA + ACIDO CLAVULA. SANDOZ/02043401/ [Suspect]
     Active Substance: AMOXICILLIN\CLAVULANIC ACID
     Indication: ERYSIPELAS
     Dosage: 3 GRAM, QD, 1000 MG / 125 MG, TROIS FOIS PAR JOUR
     Route: 048
     Dates: start: 20180609, end: 20180611
  17. NOCTAMIDE [Concomitant]
     Active Substance: LORMETAZEPAM
  18. NEFOPAM MYLAN 20 MG/2 ML, SOLUTION INJECTABLE [Suspect]
     Active Substance: NEFOPAM HYDROCHLORIDE
     Indication: PAIN IN EXTREMITY
     Dosage: 20 MG PAR VOIE SUBLINGUALE, SI BESOIN 4 FOIS PAR JOUR(CONCENTRATION-20 MG/2 ML)
     Route: 065
     Dates: start: 20180609, end: 20180613

REACTIONS (2)
  - Leukopenia [Recovered/Resolved]
  - Anaemia [Recovering/Resolving]

NARRATIVE: CASE EVENT DATE: 20180612
